FAERS Safety Report 18760678 (Version 5)
Quarter: 2021Q2

REPORT INFORMATION
  Report Type: Spontaneous
  Country: US (occurrence: US)
  Receive Date: 20210119
  Receipt Date: 20210519
  Transmission Date: 20210717
  Serious: Yes (Hospitalization, Other)
  Sender: FDA-Public Use
  Company Number: US-PFIZER INC-2021026374

PATIENT
  Age: 63 Year
  Sex: Female

DRUGS (2)
  1. IBRANCE [Suspect]
     Active Substance: PALBOCICLIB
     Indication: BREAST CANCER FEMALE
     Dosage: 125 MG, CYCLIC (DAILY FOR 21 DAYS ON, 7 DAYS OFF ON A 28 DAY CYCLE)
  2. IBRANCE [Suspect]
     Active Substance: PALBOCICLIB
     Dosage: 100 MG

REACTIONS (9)
  - Abdominal pain upper [Unknown]
  - Abdominal distension [Unknown]
  - Dysgeusia [Unknown]
  - Diarrhoea [Unknown]
  - Decreased appetite [Unknown]
  - Intestinal obstruction [Unknown]
  - Blood iron decreased [Unknown]
  - Product dose omission issue [Unknown]
  - Eructation [Unknown]
